FAERS Safety Report 6429242-0 (Version None)
Quarter: 2009Q4

REPORT INFORMATION
  Report Type: 
  Country: None (occurrence: None)
  Receive Date: 20091105
  Receipt Date: 20091023
  Transmission Date: 20100525
  Serious: Yes (Other)
  Sender: FDA-Public Use
  Company Number: PHHY2009BR24192

PATIENT
  Sex: Female

DRUGS (6)
  1. FORASEQ [Suspect]
     Indication: ASTHMA
     Dosage: 02 INHALATIONS DAILY
     Dates: start: 20090616
  2. MIFLONIDE [Suspect]
     Indication: ASTHMA
     Dosage: 02 INHALALTIONS DAILY
     Dates: start: 20090616
  3. BUDECORT [Concomitant]
     Dosage: 02 TABLETS PER DAY
     Route: 048
  4. PASALIX [Concomitant]
     Dosage: 01 TABLETS PER DAY
     Route: 048
  5. MULTI-VITAMINS [Concomitant]
     Dosage: 01 TABLET PER DAY
     Route: 048
  6. ESTRADIOL + NORETHISTERONE ACETATE [Concomitant]

REACTIONS (2)
  - DRUG EXPOSURE DURING PREGNANCY [None]
  - REPRODUCTIVE TRACT DISORDER [None]
